FAERS Safety Report 20926036 (Version 5)
Quarter: 2025Q2

REPORT INFORMATION
  Report Type: Spontaneous
  Country: PL (occurrence: PL)
  Receive Date: 20220607
  Receipt Date: 20250425
  Transmission Date: 20250717
  Serious: Yes (Hospitalization, Other)
  Sender: UCB
  Company Number: PL-UCBSA-2022032186

PATIENT
  Age: 43 Year
  Sex: Female

DRUGS (16)
  1. LEVETIRACETAM [Suspect]
     Active Substance: LEVETIRACETAM
     Indication: Epilepsy
  2. CARBAMAZEPINE [Suspect]
     Active Substance: CARBAMAZEPINE
     Indication: Epilepsy
  3. DIAZEPAM [Suspect]
     Active Substance: DIAZEPAM
     Indication: Status epilepticus
     Route: 042
  4. GABAPENTIN [Suspect]
     Active Substance: GABAPENTIN
     Indication: Epilepsy
  5. LAMOTRIGINE [Suspect]
     Active Substance: LAMOTRIGINE
     Indication: Juvenile myoclonic epilepsy
  6. LAMOTRIGINE [Suspect]
     Active Substance: LAMOTRIGINE
  7. OXCARBAZEPINE [Suspect]
     Active Substance: OXCARBAZEPINE
     Indication: Juvenile myoclonic epilepsy
  8. OXCARBAZEPINE [Suspect]
     Active Substance: OXCARBAZEPINE
  9. OXCARBAZEPINE [Suspect]
     Active Substance: OXCARBAZEPINE
  10. PHENYTOIN SODIUM [Suspect]
     Active Substance: PHENYTOIN SODIUM
     Indication: Epilepsy
  11. TOPIRAMATE [Suspect]
     Active Substance: TOPIRAMATE
     Indication: Juvenile myoclonic epilepsy
  12. TOPIRAMATE [Suspect]
     Active Substance: TOPIRAMATE
  13. TOPIRAMATE [Suspect]
     Active Substance: TOPIRAMATE
  14. VALPROIC ACID [Suspect]
     Active Substance: VALPROIC ACID
     Indication: Juvenile myoclonic epilepsy
  15. VALPROIC ACID [Suspect]
     Active Substance: VALPROIC ACID
  16. VALPROIC ACID [Suspect]
     Active Substance: VALPROIC ACID

REACTIONS (5)
  - Status epilepticus [Recovered/Resolved]
  - Mental impairment [Recovered/Resolved]
  - Myoclonic epilepsy [Recovered/Resolved]
  - Therapeutic product effect incomplete [Unknown]
  - Petit mal epilepsy [Recovered/Resolved]
